FAERS Safety Report 19667952 (Version 1)
Quarter: 2021Q3

REPORT INFORMATION
  Report Type: Spontaneous
  Country: CH (occurrence: CH)
  Receive Date: 20210806
  Receipt Date: 20210806
  Transmission Date: 20211014
  Serious: Yes (Hospitalization)
  Sender: FDA-Public Use
  Company Number: CH-PFIZER INC-202100968204

PATIENT
  Age: 83 Year
  Sex: Female
  Weight: 60 kg

DRUGS (16)
  1. TORASEMID SANDOZ [Concomitant]
     Active Substance: TORSEMIDE
     Dosage: 5 MG (X1)
  2. NEPHROTRANS [Concomitant]
     Active Substance: SODIUM BICARBONATE
     Dosage: 500 MG (X2)
  3. BACTRIM [Suspect]
     Active Substance: SULFAMETHOXAZOLE\TRIMETHOPRIM
     Dosage: 800/160 MG (X2)
     Route: 048
     Dates: start: 20210615, end: 20210621
  4. AMLODIPIN?MEPHA [Concomitant]
     Active Substance: AMLODIPINE MESYLATE
     Dosage: 5 MG (X1)
  5. ROCEPHIN [Concomitant]
     Active Substance: CEFTRIAXONE SODIUM
     Dosage: 2 G (X1)
     Route: 042
     Dates: end: 20210615
  6. DAFALGAN [Concomitant]
     Active Substance: ACETAMINOPHEN
     Dosage: 1 G (X3)
  7. CLEXANE [Concomitant]
     Active Substance: ENOXAPARIN SODIUM
     Dosage: 60 MG (X2)
  8. MALTOFER [FERRIC HYDROXIDE POLYMALTOSE COMPLEX] [Concomitant]
     Active Substance: IRON POLYMALTOSE
     Dosage: 100 MG (X1)
  9. PREGABALIN PFIZER [Suspect]
     Active Substance: PREGABALIN
     Dosage: 75 MG (X2)
     Route: 048
     Dates: start: 20210426, end: 20210621
  10. PLAVIX [Concomitant]
     Active Substance: CLOPIDOGREL BISULFATE
     Dosage: 75 MG (X1)
  11. DOXIUM [Concomitant]
     Active Substance: CALCIUM DOBESILATE
     Dosage: 500 MG (X2)
  12. JARDIANCE MET [Concomitant]
     Active Substance: EMPAGLIFLOZIN\METFORMIN HYDROCHLORIDE
     Dosage: 5/500MG (X2)
  13. ROSUVASTATIN. [Concomitant]
     Active Substance: ROSUVASTATIN
     Dosage: 10 MG (X1)
  14. PREGABALIN PFIZER [Suspect]
     Active Substance: PREGABALIN
     Dosage: 50 MG (X2)
     Route: 048
     Dates: start: 20210317, end: 20210425
  15. CORDARONE [Concomitant]
     Active Substance: AMIODARONE HYDROCHLORIDE
     Dosage: 100 MG (X1)
  16. PANTOZOL [Concomitant]
     Active Substance: PANTOPRAZOLE SODIUM
     Dosage: 20 MG (X1)

REACTIONS (4)
  - Glomerular filtration rate decreased [Recovered/Resolved]
  - Blood creatinine increased [Recovered/Resolved]
  - Dyskinesia [Recovered/Resolved]
  - Myoclonus [Unknown]

NARRATIVE: CASE EVENT DATE: 2021
